FAERS Safety Report 6176379-X (Version None)
Quarter: 2009Q2

REPORT INFORMATION
  Report Type: 
  Country: None (occurrence: None)
  Receive Date: 20090501
  Receipt Date: 20090421
  Transmission Date: 20091009
  Serious: Yes (Hospitalization, Other)
  Sender: FDA-Public Use
  Company Number: US-JNJFOC-20090405169

PATIENT
  Age: 61 Year
  Sex: Male

DRUGS (7)
  1. INFLIXIMAB [Suspect]
     Indication: CROHN'S DISEASE
     Dosage: ON INFLIXIMAB FOR 2 1/2 YEARS
     Route: 042
  2. PREDNISONE [Suspect]
     Indication: CROHN'S DISEASE
     Route: 048
  3. AMPHOTERICIN B [Suspect]
     Indication: PNEUMONIA CRYPTOCOCCAL
  4. CELECOXIB [Concomitant]
     Indication: ARTHRALGIA
  5. ACETAMINOPHEN AND HYDROCODONE BITARTRATE [Concomitant]
     Indication: ARTHRALGIA
  6. BUDESONIDE [Concomitant]
     Route: 048
  7. AZATHIOPRINE [Concomitant]
     Route: 048

REACTIONS (4)
  - CROHN'S DISEASE [None]
  - OSTEONECROSIS [None]
  - PNEUMONIA CRYPTOCOCCAL [None]
  - RENAL FAILURE [None]
